FAERS Safety Report 6930187-8 (Version None)
Quarter: 2010Q3

REPORT INFORMATION
  Report Type: 
  Country: None (occurrence: None)
  Receive Date: 20100818
  Receipt Date: 20100716
  Transmission Date: 20110219
  Serious: No
  Sender: FDA-Public Use
  Company Number: US-PFIZER INC-2010089295

PATIENT
  Sex: Male
  Weight: 91 kg

DRUGS (6)
  1. LIPITOR [Suspect]
     Dosage: 20 MG, 1X/DAY
     Route: 048
     Dates: start: 20040201
  2. CRESTOR [Suspect]
     Dosage: UNK
     Route: 048
     Dates: start: 20100101, end: 20100101
  3. TOPROL-XL [Concomitant]
     Indication: PROPHYLAXIS
     Dosage: 50 MG, 1X/DAY
     Route: 048
     Dates: start: 20040101
  4. PLAVIX [Concomitant]
     Indication: PROPHYLAXIS
     Dosage: UNK
     Route: 048
     Dates: start: 20040101, end: 20090101
  5. ALTACE [Concomitant]
     Indication: HYPERTENSION
     Dosage: 10 MG, 1X/DAY
     Route: 048
     Dates: start: 20090101
  6. METOPROLOL [Concomitant]
     Indication: HYPERTENSION
     Dosage: 100 MG, 1X/DAY
     Route: 048
     Dates: start: 20090101

REACTIONS (5)
  - ABDOMINAL PAIN [None]
  - DIARRHOEA [None]
  - HEADACHE [None]
  - MUSCLE SPASMS [None]
  - MYALGIA [None]
